FAERS Safety Report 9166764 (Version 1)
Quarter: 2012Q4

REPORT INFORMATION
  Report Type: 
  Country: US (occurrence: US)
  Receive Date: 20121126
  Receipt Date: 20121126
  Transmission Date: 20130627
  Serious: Yes (Hospitalization, Other)
  Sender: FDA-Public Use
  Company Number: US-RB-046963-12

PATIENT
  Age: 42 Year
  Sex: Female

DRUGS (5)
  1. SUBOXONE TABLET [Suspect]
     Indication: PAIN
     Dosage: 21-Sep-2012 she took 4 mg, on 22-Sep-2012 4mg/3 times, on 23-Sep-2012 4 mg/twice
     Route: 060
     Dates: start: 20120921, end: 20120923
  2. SUBOXONE TABLET [Suspect]
     Indication: DRUG DEPENDENCE
     Route: 060
     Dates: start: 201210, end: 201210
  3. SUBOXONE TABLET [Suspect]
     Dosage: 2 mg as needed
     Route: 060
     Dates: start: 201211
  4. CLONIDINE [Concomitant]
     Indication: PRODUCT USED FOR UNKNOWN INDICATION
     Dosage: Dosing details unknown
     Route: 065
  5. THYROXINE [Concomitant]
     Indication: THYROID DISORDER
     Dosage: Dosing details unknown
     Route: 065

REACTIONS (9)
  - Somnolence [Recovered/Resolved]
  - Blood pressure decreased [Recovered/Resolved]
  - Unresponsive to stimuli [Recovered/Resolved]
  - Coma [Recovered/Resolved]
  - Aspiration [Recovered/Resolved]
  - Off label use [Not Recovered/Not Resolved]
  - Dizziness [Not Recovered/Not Resolved]
  - Nausea [Not Recovered/Not Resolved]
  - Wrong technique in drug usage process [Not Recovered/Not Resolved]
